FAERS Safety Report 22600195 (Version 2)
Quarter: 2024Q1

REPORT INFORMATION
  Report Type: Spontaneous
  Country: US (occurrence: US)
  Receive Date: 20230614
  Receipt Date: 20240208
  Transmission Date: 20240409
  Serious: Yes (Death)
  Sender: FDA-Public Use
  Company Number: US-PFIZER INC-PV202300105105

PATIENT
  Age: 87 Year
  Sex: Male
  Weight: 65.77 kg

DRUGS (1)
  1. VYNDAMAX [Suspect]
     Active Substance: TAFAMIDIS
     Indication: Cardiac amyloidosis
     Dosage: 61 MG
     Dates: end: 20230613

REACTIONS (2)
  - Cardiac amyloidosis [Fatal]
  - Disease progression [Fatal]

NARRATIVE: CASE EVENT DATE: 20230613
